FAERS Safety Report 23754705 (Version 1)
Quarter: 2024Q2

REPORT INFORMATION
  Report Type: Spontaneous
  Country: US (occurrence: US)
  Receive Date: 20240418
  Receipt Date: 20240418
  Transmission Date: 20240716
  Serious: No
  Sender: FDA-Public Use
  Company Number: US-AMGEN-USASP2024075389

PATIENT
  Age: 79 Year
  Sex: Female

DRUGS (2)
  1. ENBREL [Suspect]
     Active Substance: ETANERCEPT
     Indication: Arthritis
     Dosage: 50 MILLIGRAM, QWK
     Route: 065
     Dates: start: 2022
  2. ENBREL [Suspect]
     Active Substance: ETANERCEPT
     Indication: Off label use

REACTIONS (3)
  - Off label use [Unknown]
  - Device difficult to use [Unknown]
  - Drug dose omission by device [Unknown]

NARRATIVE: CASE EVENT DATE: 20220101
